FAERS Safety Report 4884941-7 (Version None)
Quarter: 2006Q1

REPORT INFORMATION
  Report Type: 
  Country: None (occurrence: None)
  Receive Date: 20060119
  Receipt Date: 20060110
  Transmission Date: 20060701
  Serious: Yes (Hospitalization, Other)
  Sender: FDA-Public Use
  Company Number: US-JNJFOC-20051103217

PATIENT
  Sex: Female
  Weight: 61.24 kg

DRUGS (1)
  1. ORTHO-NOVUM 7/7/7-21 [Suspect]
     Indication: ENDOMETRIOSIS
     Route: 048
     Dates: start: 19980101, end: 20050901

REACTIONS (5)
  - BALANCE DISORDER [None]
  - DEMYELINATION [None]
  - DIPLOPIA [None]
  - HEMIPARESIS [None]
  - HYPOAESTHESIA [None]
